FAERS Safety Report 8277103-7 (Version None)
Quarter: 2012Q2

REPORT INFORMATION
  Report Type: 
  Country: None (occurrence: None)
  Receive Date: 20120412
  Receipt Date: 20120320
  Transmission Date: 20120825
  Serious: Yes (Other)
  Sender: FDA-Public Use
  Company Number: US-ROCHE-1056179

PATIENT
  Sex: Female
  Weight: 108.96 kg

DRUGS (2)
  1. XELODA [Suspect]
     Route: 048
     Dates: start: 20120318, end: 20120323
  2. XELODA [Suspect]
     Indication: BREAST CANCER METASTATIC
     Route: 048
     Dates: start: 20120312, end: 20120316

REACTIONS (6)
  - VISION BLURRED [None]
  - CHEST PAIN [None]
  - FATIGUE [None]
  - CHEST DISCOMFORT [None]
  - VISUAL IMPAIRMENT [None]
  - MYDRIASIS [None]
